FAERS Safety Report 4934252-6 (Version None)
Quarter: 2006Q1

REPORT INFORMATION
  Report Type: 
  Country: None (occurrence: None)
  Receive Date: 20060303
  Receipt Date: 20060221
  Transmission Date: 20060701
  Serious: Yes (Hospitalization)
  Sender: FDA-Public Use
  Company Number: CLOF-10044

PATIENT
  Age: 70 Year
  Sex: Male

DRUGS (9)
  1. CLOFARABINE [Suspect]
     Indication: ACUTE MYELOID LEUKAEMIA
     Dosage: 60 MG/M2 QD IV
     Route: 042
     Dates: start: 20050606, end: 20050715
  2. RAMIPRIL [Concomitant]
  3. COTRIMAZOLE [Concomitant]
  4. AMIBRIDE [Concomitant]
  5. ENOXAPARIN SODIUM [Concomitant]
  6. VORICONAZOLE [Concomitant]
  7. CYCLIZINE [Concomitant]
  8. ONDANSETRON [Concomitant]
  9. ALLOPURINOL [Concomitant]

REACTIONS (2)
  - ANAEMIA [None]
  - CHEST X-RAY ABNORMAL [None]
